FAERS Safety Report 6839123-6 (Version None)
Quarter: 2010Q2

REPORT INFORMATION
  Report Type: 
  Country: None (occurrence: None)
  Receive Date: 20100622
  Receipt Date: 20090713
  Transmission Date: 20101027
  Serious: Yes (Other)
  Sender: FDA-Public Use
  Company Number: 83752

PATIENT
  Sex: Female
  Weight: 48 kg

DRUGS (3)
  1. VECURONIUM BROMIDE [Suspect]
     Indication: SURGERY
     Dosage: 6MG/IV AT 14:45; 2MG/IV AT 15:14; 2MG/IV AT
     Route: 042
     Dates: start: 20090710
  2. BETAPACE [Concomitant]
  3. SOTALOL [Concomitant]

REACTIONS (1)
  - DRUG INEFFECTIVE [None]
